FAERS Safety Report 11929931 (Version 1)
Quarter: 2016Q1

REPORT INFORMATION
  Report Type: Report from Study
  Country: US (occurrence: US)
  Receive Date: 20160120
  Receipt Date: 20160120
  Transmission Date: 20160526
  Serious: Yes (Death, Hospitalization, Other)
  Sender: FDA-Public Use
  Company Number: US-MALLINCKRODT-T201600035

PATIENT
  Age: 74 Year
  Sex: Female

DRUGS (15)
  1. LOSARTAN. [Concomitant]
     Active Substance: LOSARTAN
  2. LIPITOR [Concomitant]
     Active Substance: ATORVASTATIN CALCIUM
  3. PRILOSEC [Concomitant]
     Active Substance: OMEPRAZOLE MAGNESIUM
  4. ASPIRIN. [Concomitant]
     Active Substance: ASPIRIN
  5. BUMEX [Concomitant]
     Active Substance: BUMETANIDE
  6. VITAMIN B12 [Concomitant]
     Active Substance: CYANOCOBALAMIN
  7. FISH OIL [Concomitant]
     Active Substance: FISH OIL
  8. POTASSIUM [Concomitant]
     Active Substance: POTASSIUM
  9. CHANTIX [Suspect]
     Active Substance: VARENICLINE TARTRATE
     Indication: SMOKING CESSATION THERAPY
     Dosage: UNK
  10. LEVOTHYROXINE. [Concomitant]
     Active Substance: LEVOTHYROXINE
  11. CALCIUM [Concomitant]
     Active Substance: CALCIUM
  12. QUINAPRIL [Concomitant]
     Active Substance: QUINAPRIL\QUINAPRIL HYDROCHLORIDE
  13. GLEEVEC [Concomitant]
     Active Substance: IMATINIB MESYLATE
  14. OXYCONTIN [Concomitant]
     Active Substance: OXYCODONE HYDROCHLORIDE
  15. REPOSITORY CORTICOTROPIN INJECTION [Suspect]
     Active Substance: CORTICOTROPIN
     Indication: PROTEINURIA
     Dosage: 80 UNITS TWICE A WEEK
     Route: 058
     Dates: start: 20151128, end: 20151205

REACTIONS (5)
  - Seizure [Recovered/Resolved]
  - Pulmonary embolism [Fatal]
  - Myocardial infarction [Fatal]
  - Drug interaction [Recovered/Resolved]
  - Asthenia [Unknown]

NARRATIVE: CASE EVENT DATE: 20151206
